FAERS Safety Report 5963657-X (Version None)
Quarter: 2008Q4

REPORT INFORMATION
  Report Type: 
  Country: None (occurrence: None)
  Receive Date: 20081124
  Receipt Date: 20081114
  Transmission Date: 20090506
  Serious: Yes (Hospitalization)
  Sender: FDA-Public Use
  Company Number: DK-AVENTIS-200820757GDDC

PATIENT
  Age: 7 Year
  Sex: Female

DRUGS (1)
  1. MINIRIN [Suspect]

REACTIONS (1)
  - CONVULSION [None]
